FAERS Safety Report 24401899 (Version 1)
Quarter: 2024Q4

REPORT INFORMATION
  Report Type: Spontaneous
  Country: US (occurrence: None)
  Receive Date: 20241007
  Receipt Date: 20241007
  Transmission Date: 20250114
  Serious: Yes (Hospitalization, Other)
  Sender: UNICHEM
  Company Number: US-Unichem Pharmaceuticals (USA) Inc-UCM202409-001223

PATIENT
  Age: 59 Year
  Sex: Male

DRUGS (5)
  1. METFORMIN HYDROCHLORIDE [Suspect]
     Active Substance: METFORMIN HYDROCHLORIDE
     Indication: Product used for unknown indication
     Dosage: UNKNOWN
  2. GLIPIZIDE [Concomitant]
     Active Substance: GLIPIZIDE
     Indication: Product used for unknown indication
     Dosage: UNKNOWN
  3. LOSARTAN [Concomitant]
     Active Substance: LOSARTAN
     Indication: Product used for unknown indication
     Dosage: UNKNOWN
  4. AMLODIPINE [Concomitant]
     Active Substance: AMLODIPINE BESYLATE
     Indication: Product used for unknown indication
     Dosage: UNKNOWN
  5. ATORVASTATIN [Concomitant]
     Active Substance: ATORVASTATIN
     Indication: Product used for unknown indication
     Dosage: UNKNOWN

REACTIONS (11)
  - Pulseless electrical activity [Recovered/Resolved]
  - Distributive shock [Recovered/Resolved]
  - Acute respiratory distress syndrome [Recovered/Resolved]
  - Renal impairment [Recovered/Resolved]
  - Haemodynamic instability [Recovered/Resolved]
  - Mental status changes [Recovered/Resolved]
  - Lactic acidosis [Recovered/Resolved]
  - Urine output decreased [Recovered/Resolved]
  - Oedema [Recovered/Resolved]
  - Abdominal distension [Recovered/Resolved]
  - Tenderness [Recovered/Resolved]
